FAERS Safety Report 9682467 (Version 2)
Quarter: 2014Q1

REPORT INFORMATION
  Report Type: Spontaneous
  Country: AU (occurrence: AU)
  Receive Date: 20131112
  Receipt Date: 20140130
  Transmission Date: 20141002
  Serious: Yes (Death)
  Sender: FDA-Public Use
  Company Number: AU-ROCHE-1302307

PATIENT
  Age: 80 Year
  Sex: Female

DRUGS (1)
  1. ACTILYSE [Suspect]
     Indication: CEREBRAL INFARCTION
     Route: 065
     Dates: start: 20100907

REACTIONS (7)
  - Death [Fatal]
  - Pulmonary embolism [Fatal]
  - Arteriosclerosis coronary artery [Fatal]
  - Cerebrovascular accident [Fatal]
  - Circulatory collapse [Fatal]
  - Chest pain [Fatal]
  - Haemorrhage [Unknown]
